FAERS Safety Report 6904915-1 (Version None)
Quarter: 2010Q3

REPORT INFORMATION
  Report Type: 
  Country: None (occurrence: None)
  Receive Date: 20100804
  Receipt Date: 20090803
  Transmission Date: 20110219
  Serious: No
  Sender: FDA-Public Use
  Company Number: US-PFIZER INC-2009233693

PATIENT
  Sex: Female
  Weight: 97.5 kg

DRUGS (10)
  1. LYRICA [Suspect]
     Indication: POST HERPETIC NEURALGIA
     Dosage: 300 MG, 2X/DAY
     Route: 048
     Dates: start: 20090201
  2. AROMASIN [Concomitant]
     Indication: NEOPLASM MALIGNANT
     Dosage: UNK
  3. PRILOSEC [Concomitant]
     Indication: BARRETT'S OESOPHAGUS
  4. ACETYLSALICYLIC ACID [Concomitant]
     Dosage: 81 MG DAILY
  5. PREDNISONE [Concomitant]
     Indication: EYE SWELLING
     Dosage: 60 MG EVERY DAY
  6. PREDNISONE [Concomitant]
     Indication: HERPES ZOSTER
  7. TYLENOL [Concomitant]
     Indication: ARTHRITIS
     Dosage: AS NEEDED
  8. LEVOTHYROXINE [Concomitant]
     Indication: HYPOTHYROIDISM
     Dosage: 100 MCG DAILY
  9. HYDROCHLOROTHIAZIDE [Concomitant]
     Indication: HYPERTENSION
     Dosage: 12.5 MG
  10. LOVASTATIN [Concomitant]
     Indication: BLOOD CHOLESTEROL INCREASED
     Dosage: 20 MG DAILY

REACTIONS (5)
  - BALANCE DISORDER [None]
  - FEELING ABNORMAL [None]
  - FEELING DRUNK [None]
  - OEDEMA PERIPHERAL [None]
  - WEIGHT INCREASED [None]
